FAERS Safety Report 25607125 (Version 1)
Quarter: 2025Q3

REPORT INFORMATION
  Report Type: Spontaneous
  Country: CA (occurrence: CA)
  Receive Date: 20250725
  Receipt Date: 20250725
  Transmission Date: 20251020
  Serious: Yes (Life-Threatening, Hospitalization, Disabling, Other)
  Sender: AMGEN
  Company Number: CA-AMGEN-CANSP2025145193

PATIENT
  Age: 43 Year
  Sex: Female
  Weight: 60 kg

DRUGS (184)
  1. APREMILAST [Suspect]
     Active Substance: APREMILAST
     Indication: Product used for unknown indication
     Route: 065
  2. ENBREL [Suspect]
     Active Substance: ETANERCEPT
     Indication: Rheumatoid arthritis
     Dosage: 50 MILLIGRAM, QWK (1 EVERY 1 WEEK)
     Route: 065
  3. ENBREL [Suspect]
     Active Substance: ETANERCEPT
     Indication: Psoriatic arthropathy
     Route: 065
  4. ENBREL [Suspect]
     Active Substance: ETANERCEPT
     Route: 065
  5. ENBREL [Suspect]
     Active Substance: ETANERCEPT
     Route: 065
  6. ENBREL [Suspect]
     Active Substance: ETANERCEPT
     Route: 065
  7. INFLIXIMAB [Suspect]
     Active Substance: INFLIXIMAB
     Indication: Product used for unknown indication
     Route: 065
  8. RITUXIMAB [Suspect]
     Active Substance: RITUXIMAB
     Indication: Rheumatoid arthritis
     Route: 065
  9. RITUXIMAB [Suspect]
     Active Substance: RITUXIMAB
     Route: 065
  10. RITUXIMAB [Suspect]
     Active Substance: RITUXIMAB
     Route: 065
  11. ACETAMINOPHEN [Suspect]
     Active Substance: ACETAMINOPHEN
     Indication: Rheumatoid arthritis
     Route: 065
  12. ACETAMINOPHEN [Suspect]
     Active Substance: ACETAMINOPHEN
     Route: 065
  13. ACETAMINOPHEN [Suspect]
     Active Substance: ACETAMINOPHEN
     Route: 065
  14. ACETAMINOPHEN\OXYCODONE HYDROCHLORIDE [Suspect]
     Active Substance: ACETAMINOPHEN\OXYCODONE HYDROCHLORIDE
     Indication: Product used for unknown indication
     Route: 065
  15. ACTEMRA [Suspect]
     Active Substance: TOCILIZUMAB
     Indication: Rheumatoid arthritis
     Route: 065
  16. ACTEMRA [Suspect]
     Active Substance: TOCILIZUMAB
     Route: 065
  17. ACTEMRA [Suspect]
     Active Substance: TOCILIZUMAB
     Route: 065
  18. ACTEMRA [Suspect]
     Active Substance: TOCILIZUMAB
     Route: 065
  19. ACTEMRA [Suspect]
     Active Substance: TOCILIZUMAB
     Route: 065
  20. ACTEMRA [Suspect]
     Active Substance: TOCILIZUMAB
     Route: 065
  21. ACTEMRA [Suspect]
     Active Substance: TOCILIZUMAB
     Route: 065
  22. ACTEMRA [Suspect]
     Active Substance: TOCILIZUMAB
     Route: 065
  23. ACTEMRA [Suspect]
     Active Substance: TOCILIZUMAB
     Dosage: 752.8 MILLIGRAM, Q4WK (SOLUTION FOR INJECTION)
     Route: 065
  24. ACTEMRA [Suspect]
     Active Substance: TOCILIZUMAB
     Dosage: 728.0 MILLIGRAM, QMO  (SOLUTION FOR INJECTION) FOR 84 DAYS
     Route: 065
  25. ACTEMRA [Suspect]
     Active Substance: TOCILIZUMAB
     Dosage: 728 MILLIGRAM, Q4WK (SOLUTION FOR INJECTION) FOR 84 DAYS
     Route: 065
  26. ACTEMRA [Suspect]
     Active Substance: TOCILIZUMAB
     Dosage: 752.8 MILLIGRAM, QMO (SOLUTION FOR INJECTION)
     Route: 065
  27. ALENDRONATE SODIUM [Suspect]
     Active Substance: ALENDRONATE SODIUM
     Indication: Rheumatoid arthritis
     Route: 065
  28. ALENDRONATE SODIUM [Suspect]
     Active Substance: ALENDRONATE SODIUM
     Route: 065
  29. ALENDRONATE SODIUM [Suspect]
     Active Substance: ALENDRONATE SODIUM
     Route: 065
  30. ALENDRONATE SODIUM\CHOLECALCIFEROL [Suspect]
     Active Substance: ALENDRONATE SODIUM\CHOLECALCIFEROL
     Indication: Rheumatoid arthritis
     Route: 065
  31. PANTOPRAZOLE SODIUM ANHYDROUS [Suspect]
     Active Substance: PANTOPRAZOLE SODIUM ANHYDROUS
     Indication: Product used for unknown indication
     Route: 065
  32. ARAVA [Suspect]
     Active Substance: LEFLUNOMIDE
     Indication: Rheumatoid arthritis
     Route: 065
  33. ARAVA [Suspect]
     Active Substance: LEFLUNOMIDE
     Route: 065
  34. BENZOCAINE (BENZOCAINE) [Suspect]
     Active Substance: BENZOCAINE
     Indication: Product used for unknown indication
     Route: 065
  35. CALCIUM [Suspect]
     Active Substance: CALCIUM
     Indication: Rheumatoid arthritis
     Route: 065
  36. CALCIUM [Suspect]
     Active Substance: CALCIUM
     Indication: Psoriatic arthropathy
  37. CALCIUM CARBONATE [Suspect]
     Active Substance: CALCIUM CARBONATE
     Indication: Product used for unknown indication
     Route: 065
  38. CALCIUM GLUBIONATE [Suspect]
     Active Substance: CALCIUM GLUBIONATE
     Indication: Product used for unknown indication
     Route: 065
  39. CELECOXIB [Suspect]
     Active Substance: CELECOXIB
     Indication: Product used for unknown indication
     Route: 065
  40. CELECOXIB [Suspect]
     Active Substance: CELECOXIB
     Indication: Arthritis
     Route: 065
  41. CERTOLIZUMAB PEGOL [Suspect]
     Active Substance: CERTOLIZUMAB PEGOL
     Indication: Rheumatoid arthritis
     Route: 065
  42. CETIRIZINE [Suspect]
     Active Substance: CETIRIZINE HYDROCHLORIDE
     Indication: Product used for unknown indication
     Route: 065
  43. CETIRIZINE [Suspect]
     Active Substance: CETIRIZINE HYDROCHLORIDE
     Route: 065
  44. CETIRIZINE [Suspect]
     Active Substance: CETIRIZINE HYDROCHLORIDE
     Route: 065
  45. CETIRIZINE HYDROCHLORIDE [Suspect]
     Active Substance: CETIRIZINE HYDROCHLORIDE
     Indication: Rheumatoid arthritis
     Route: 065
  46. CETIRIZINE HYDROCHLORIDE AND PSEUDOEPHEDRINE HYDROCHLORIDE [Suspect]
     Active Substance: CETIRIZINE HYDROCHLORIDE\PSEUDOEPHEDRINE HYDROCHLORIDE
     Indication: Rheumatoid arthritis
     Route: 065
  47. CETIRIZINE HYDROCHLORIDE AND PSEUDOEPHEDRINE HYDROCHLORIDE [Suspect]
     Active Substance: CETIRIZINE HYDROCHLORIDE\PSEUDOEPHEDRINE HYDROCHLORIDE
     Indication: Off label use
     Route: 065
  48. CETRIMONIUM BROMIDE [Suspect]
     Active Substance: CETRIMONIUM BROMIDE
     Indication: Product used for unknown indication
     Route: 065
  49. CHLORAPREP [Suspect]
     Active Substance: CHLORHEXIDINE GLUCONATE\ISOPROPYL ALCOHOL
     Indication: Product used for unknown indication
     Route: 065
  50. CHLORHEXIDINE [Suspect]
     Active Substance: CHLORHEXIDINE
     Indication: Product used for unknown indication
     Route: 065
  51. CHLORHEXIDINE [Suspect]
     Active Substance: CHLORHEXIDINE
     Route: 065
  52. CHLORHEXIDINE GLUCONATE [Suspect]
     Active Substance: CHLORHEXIDINE GLUCONATE
     Indication: Product used for unknown indication
     Route: 065
  53. CHLORHEXIDINE GLUCONATE [Suspect]
     Active Substance: CHLORHEXIDINE GLUCONATE
     Route: 065
  54. CHOLECALCIFEROL [Suspect]
     Active Substance: CHOLECALCIFEROL
     Indication: Product used for unknown indication
     Route: 065
  55. CIMZIA [Suspect]
     Active Substance: CERTOLIZUMAB PEGOL
     Indication: Rheumatoid arthritis
     Route: 065
  56. CIMZIA [Suspect]
     Active Substance: CERTOLIZUMAB PEGOL
     Route: 065
  57. CIMZIA [Suspect]
     Active Substance: CERTOLIZUMAB PEGOL
     Route: 065
  58. CORTISONE [Suspect]
     Active Substance: CORTISONE
     Indication: Rheumatoid arthritis
     Route: 065
  59. CORTISONE ACETATE [Suspect]
     Active Substance: CORTISONE ACETATE
     Indication: Rheumatoid arthritis
     Route: 065
  60. CORTISONE ACETATE [Suspect]
     Active Substance: CORTISONE ACETATE
     Route: 065
  61. CORTISONE ACETATE [Suspect]
     Active Substance: CORTISONE ACETATE
     Route: 065
  62. CORTISONE ACETATE [Suspect]
     Active Substance: CORTISONE ACETATE
     Route: 065
  63. CORTISONE ACETATE [Suspect]
     Active Substance: CORTISONE ACETATE
     Route: 065
  64. COSENTYX [Suspect]
     Active Substance: SECUKINUMAB
     Indication: Rheumatoid arthritis
     Route: 065
  65. COSENTYX [Suspect]
     Active Substance: SECUKINUMAB
     Route: 065
  66. DESOXIMETASONE [Suspect]
     Active Substance: DESOXIMETASONE
     Indication: Rheumatoid arthritis
     Route: 065
  67. DESOXIMETASONE [Suspect]
     Active Substance: DESOXIMETASONE
     Route: 065
  68. DESOXIMETASONE [Suspect]
     Active Substance: DESOXIMETASONE
     Route: 065
  69. DESOXIMETASONE [Suspect]
     Active Substance: DESOXIMETASONE
     Route: 065
  70. DESOXIMETASONE [Suspect]
     Active Substance: DESOXIMETASONE
     Route: 065
  71. DEXAMETHASONE [Suspect]
     Active Substance: DEXAMETHASONE
     Indication: Product used for unknown indication
     Route: 065
  72. DICLOFENAC DIETHYLAMINE [Suspect]
     Active Substance: DICLOFENAC DIETHYLAMINE
     Indication: Product used for unknown indication
     Route: 065
  73. DICLOFENAC POTASSIUM [Suspect]
     Active Substance: DICLOFENAC POTASSIUM
     Indication: Product used for unknown indication
     Route: 065
  74. DOXYCYCLINE [Suspect]
     Active Substance: DOXYCYCLINE
     Indication: Rheumatoid arthritis
     Route: 065
  75. ELBASVIR [Suspect]
     Active Substance: ELBASVIR
     Indication: Rheumatoid arthritis
     Route: 065
  76. ERELZI [Suspect]
     Active Substance: ETANERCEPT-SZZS
     Indication: Rheumatoid arthritis
     Route: 065
  77. FLUMETHASONE PIVALATE [Suspect]
     Active Substance: FLUMETHASONE PIVALATE
     Indication: Product used for unknown indication
     Route: 065
  78. FLUMETHASONE PIVALATE [Suspect]
     Active Substance: FLUMETHASONE PIVALATE
     Route: 065
  79. FLUMETHASONE PIVALATE [Suspect]
     Active Substance: FLUMETHASONE PIVALATE
     Route: 065
  80. FOLIC ACID [Suspect]
     Active Substance: FOLIC ACID
     Indication: Rheumatoid arthritis
     Route: 065
  81. FOLIC ACID [Suspect]
     Active Substance: FOLIC ACID
     Route: 065
  82. FOLIC ACID [Suspect]
     Active Substance: FOLIC ACID
     Route: 065
  83. FOLIC ACID [Suspect]
     Active Substance: FOLIC ACID
     Route: 065
  84. FOLIC ACID [Suspect]
     Active Substance: FOLIC ACID
     Route: 065
  85. FOLIC ACID [Suspect]
     Active Substance: FOLIC ACID
     Route: 065
  86. FOSAMAX [Suspect]
     Active Substance: ALENDRONATE SODIUM
     Indication: Rheumatoid arthritis
     Route: 065
  87. FOSAMAX [Suspect]
     Active Substance: ALENDRONATE SODIUM
     Route: 065
  88. FOSAMAX [Suspect]
     Active Substance: ALENDRONATE SODIUM
     Route: 065
  89. GOLIMUMAB [Suspect]
     Active Substance: GOLIMUMAB
     Indication: Rheumatoid arthritis
     Route: 065
  90. GOLIMUMAB [Suspect]
     Active Substance: GOLIMUMAB
     Indication: Psoriasis
     Route: 065
  91. HUMIRA [Suspect]
     Active Substance: ADALIMUMAB
     Indication: Product used for unknown indication
     Route: 058
  92. HUMIRA [Suspect]
     Active Substance: ADALIMUMAB
     Route: 065
  93. HUMIRA [Suspect]
     Active Substance: ADALIMUMAB
     Route: 065
  94. HYDROCORTISONE ACETATE [Suspect]
     Active Substance: HYDROCORTISONE ACETATE
     Indication: Product used for unknown indication
     Route: 065
  95. HYDROXYCHLOROQUINE [Suspect]
     Active Substance: HYDROXYCHLOROQUINE
     Indication: Product used for unknown indication
     Dosage: 400.0 MILLIGRAM, QD
     Route: 065
  96. HYDROXYCHLOROQUINE [Suspect]
     Active Substance: HYDROXYCHLOROQUINE
     Dosage: 400.0 MILLIGRAM, QD
     Route: 065
  97. HYDROXYCHLOROQUINE [Suspect]
     Active Substance: HYDROXYCHLOROQUINE
     Dosage: UNK UNK, QD
     Route: 065
  98. HYDROXYCHLOROQUINE [Suspect]
     Active Substance: HYDROXYCHLOROQUINE
     Route: 065
  99. HYDROXYCHLOROQUINE [Suspect]
     Active Substance: HYDROXYCHLOROQUINE
     Route: 065
  100. HYDROXYCHLOROQUINE [Suspect]
     Active Substance: HYDROXYCHLOROQUINE
     Route: 065
  101. HYDROXYCHLOROQUINE SULFATE [Suspect]
     Active Substance: HYDROXYCHLOROQUINE SULFATE
     Indication: Rheumatoid arthritis
     Dosage: 400.0 MILLIGRAM, QD
     Route: 065
  102. HYDROXYCHLOROQUINE SULFATE [Suspect]
     Active Substance: HYDROXYCHLOROQUINE SULFATE
     Route: 065
  103. HYDROXYCHLOROQUINE SULFATE [Suspect]
     Active Substance: HYDROXYCHLOROQUINE SULFATE
     Dosage: 400.0 MILLIGRAM, QD
     Route: 065
  104. HYRIMOZ [Suspect]
     Active Substance: ADALIMUMAB-ADAZ
     Indication: Rheumatoid arthritis
     Route: 058
  105. ISOPROPYL ALCOHOL [Suspect]
     Active Substance: ISOPROPYL ALCOHOL
     Indication: Product used for unknown indication
     Route: 065
  106. ISOPROPYL ALCOHOL [Suspect]
     Active Substance: ISOPROPYL ALCOHOL
     Route: 065
  107. METHOTREXATE [Suspect]
     Active Substance: METHOTREXATE
     Indication: Rheumatoid arthritis
     Route: 013
  108. METHOTREXATE [Suspect]
     Active Substance: METHOTREXATE
     Route: 065
  109. METHOTREXATE [Suspect]
     Active Substance: METHOTREXATE
     Route: 065
  110. METHOTREXATE [Suspect]
     Active Substance: METHOTREXATE
     Route: 065
  111. METHOTREXATE [Suspect]
     Active Substance: METHOTREXATE
     Route: 065
  112. NAPROXEN SODIUM [Suspect]
     Active Substance: NAPROXEN SODIUM
     Indication: Rheumatoid arthritis
     Route: 065
  113. NAPROXEN SODIUM [Suspect]
     Active Substance: NAPROXEN SODIUM
     Route: 065
  114. NAPROXEN SODIUM [Suspect]
     Active Substance: NAPROXEN SODIUM
     Dosage: 2 DOSAGE FORM, QD (500.0 MILLIGRAM)
     Route: 065
  115. ORENCIA [Suspect]
     Active Substance: ABATACEPT
     Indication: Rheumatoid arthritis
     Route: 065
  116. ORENCIA [Suspect]
     Active Substance: ABATACEPT
     Indication: Product used for unknown indication
     Route: 065
  117. ORENCIA [Suspect]
     Active Substance: ABATACEPT
     Route: 065
  118. ORENCIA [Suspect]
     Active Substance: ABATACEPT
     Route: 065
  119. ORENCIA [Suspect]
     Active Substance: ABATACEPT
     Route: 065
  120. OXYCODONE [Suspect]
     Active Substance: OXYCODONE
     Indication: Product used for unknown indication
     Route: 065
  121. OXYCODONE [Suspect]
     Active Substance: OXYCODONE
     Route: 065
  122. OXYCODONE [Suspect]
     Active Substance: OXYCODONE
     Route: 065
  123. OXYCODONE [Suspect]
     Active Substance: OXYCODONE
     Route: 065
  124. OXYCODONE TEREPHTHALATE [Suspect]
     Active Substance: OXYCODONE TEREPHTHALATE
     Indication: Product used for unknown indication
     Route: 065
  125. PANTOPRAZOLE SODIUM [Suspect]
     Active Substance: PANTOPRAZOLE SODIUM
     Indication: Product used for unknown indication
     Route: 065
  126. PERIOGARD [Suspect]
     Active Substance: CHLORHEXIDINE GLUCONATE
     Indication: Product used for unknown indication
     Route: 065
  127. PHTHALYLSULFATHIAZOLE [Suspect]
     Active Substance: PHTHALYLSULFATHIAZOLE
     Indication: Rheumatoid arthritis
     Route: 065
  128. PHTHALYLSULFATHIAZOLE [Suspect]
     Active Substance: PHTHALYLSULFATHIAZOLE
     Route: 065
  129. PHTHALYLSULFATHIAZOLE [Suspect]
     Active Substance: PHTHALYLSULFATHIAZOLE
     Route: 065
  130. PLAQUENIL [Suspect]
     Active Substance: HYDROXYCHLOROQUINE SULFATE
     Indication: Rheumatoid arthritis
     Route: 065
  131. PREDNISONE [Suspect]
     Active Substance: PREDNISONE
     Indication: Rheumatoid arthritis
     Route: 065
  132. PREDNISONE [Suspect]
     Active Substance: PREDNISONE
     Route: 065
  133. PREDNISONE [Suspect]
     Active Substance: PREDNISONE
     Route: 065
  134. PREDNISONE [Suspect]
     Active Substance: PREDNISONE
     Route: 065
  135. PREDNISONE [Suspect]
     Active Substance: PREDNISONE
     Route: 065
  136. PREDNISONE [Suspect]
     Active Substance: PREDNISONE
     Indication: Rheumatoid arthritis
     Route: 065
  137. PREDNISONE [Suspect]
     Active Substance: PREDNISONE
     Route: 065
  138. PREGABALIN [Suspect]
     Active Substance: PREGABALIN
     Indication: Product used for unknown indication
     Route: 065
  139. PSEUDOEPHEDRINE HYDROCHLORIDE [Suspect]
     Active Substance: PSEUDOEPHEDRINE HYDROCHLORIDE
     Indication: Rheumatoid arthritis
     Route: 065
  140. PSEUDOEPHEDRINE HYDROCHLORIDE [Suspect]
     Active Substance: PSEUDOEPHEDRINE HYDROCHLORIDE
     Route: 065
  141. PSEUDOEPHEDRINE HYDROCHLORIDE [Suspect]
     Active Substance: PSEUDOEPHEDRINE HYDROCHLORIDE
     Route: 065
  142. PSEUDOEPHEDRINE [Suspect]
     Active Substance: PSEUDOEPHEDRINE
     Indication: Rheumatoid arthritis
     Route: 065
  143. UNSPECIFIED INGREDIENT [Suspect]
     Active Substance: UNSPECIFIED INGREDIENT
     Indication: Rheumatoid arthritis
     Route: 065
  144. CETIRIZINE HYDROCHLORIDE\PSEUDOEPHEDRINE HYDROCHLORIDE [Suspect]
     Active Substance: CETIRIZINE HYDROCHLORIDE\PSEUDOEPHEDRINE HYDROCHLORIDE
     Indication: Rheumatoid arthritis
     Route: 065
  145. CETIRIZINE HYDROCHLORIDE\PSEUDOEPHEDRINE HYDROCHLORIDE [Suspect]
     Active Substance: CETIRIZINE HYDROCHLORIDE\PSEUDOEPHEDRINE HYDROCHLORIDE
     Indication: Off label use
     Route: 065
  146. CETIRIZINE HYDROCHLORIDE\PSEUDOEPHEDRINE HYDROCHLORIDE [Suspect]
     Active Substance: CETIRIZINE HYDROCHLORIDE\PSEUDOEPHEDRINE HYDROCHLORIDE
     Route: 065
  147. REMICADE [Suspect]
     Active Substance: INFLIXIMAB
     Indication: Rheumatoid arthritis
     Route: 040
  148. REMICADE [Suspect]
     Active Substance: INFLIXIMAB
     Route: 065
  149. SIMPONI [Suspect]
     Active Substance: GOLIMUMAB
     Indication: Rheumatoid arthritis
     Route: 058
  150. SIMPONI [Suspect]
     Active Substance: GOLIMUMAB
     Route: 065
  151. SIMPONI [Suspect]
     Active Substance: GOLIMUMAB
     Route: 058
  152. SULFASALAZINE [Suspect]
     Active Substance: SULFASALAZINE
     Indication: Rheumatoid arthritis
     Route: 065
  153. SULFASALAZINE [Suspect]
     Active Substance: SULFASALAZINE
     Dosage: 300.0 MILLIGRAM, QD
     Route: 065
  154. SULFASALAZINE [Suspect]
     Active Substance: SULFASALAZINE
     Route: 065
  155. SULFASALAZINE [Suspect]
     Active Substance: SULFASALAZINE
     Route: 065
  156. SULFASALAZINE [Suspect]
     Active Substance: SULFASALAZINE
     Dosage: 2 DOSAGE FORM, QD (1000.0 MILLIGRAM)
     Route: 065
  157. SULFASALAZINE [Suspect]
     Active Substance: SULFASALAZINE
     Route: 065
  158. SULFASALAZINE [Suspect]
     Active Substance: SULFASALAZINE
     Dosage: 2 DOSAGE FORM, QD
     Route: 065
  159. SULFASALAZINE [Suspect]
     Active Substance: SULFASALAZINE
     Route: 065
  160. SULFASALAZINE [Suspect]
     Active Substance: SULFASALAZINE
     Route: 065
  161. SULFASALAZINE [Suspect]
     Active Substance: SULFASALAZINE
     Dosage: 1 GRAM, QD
     Route: 065
  162. SULFASALAZINE [Suspect]
     Active Substance: SULFASALAZINE
     Route: 065
  163. SULFASALAZINE [Suspect]
     Active Substance: SULFASALAZINE
     Dosage: 2 GRAM, QD
     Route: 065
  164. SULFASALAZINE [Suspect]
     Active Substance: SULFASALAZINE
     Route: 065
  165. SULFATRIM [Suspect]
     Active Substance: SULFAMETHOXAZOLE\TRIMETHOPRIM
     Indication: Product used for unknown indication
     Route: 065
  166. TOCILIZUMAB [Suspect]
     Active Substance: TOCILIZUMAB
     Indication: Rheumatoid arthritis
     Route: 065
  167. TOCILIZUMAB [Suspect]
     Active Substance: TOCILIZUMAB
     Route: 065
  168. TOCILIZUMAB [Suspect]
     Active Substance: TOCILIZUMAB
     Route: 065
  169. TOFACITINIB CITRATE [Suspect]
     Active Substance: TOFACITINIB CITRATE
     Indication: Rheumatoid arthritis
     Route: 065
  170. VITAMIN C [Suspect]
     Active Substance: ASCORBIC ACID
     Indication: Product used for unknown indication
     Route: 065
  171. VITAMIN D3 [Suspect]
     Active Substance: CHOLECALCIFEROL
     Indication: Product used for unknown indication
     Route: 065
  172. VOLTAREN [Suspect]
     Active Substance: DICLOFENAC SODIUM
     Indication: Rheumatoid arthritis
     Route: 065
  173. VOLTAREN [Suspect]
     Active Substance: DICLOFENAC SODIUM
     Indication: Osteoarthritis
     Route: 065
  174. VOLTAREN [Suspect]
     Active Substance: DICLOFENAC SODIUM
     Indication: Inflammation
     Route: 065
  175. HYALURONIDASE (HUMAN RECOMBINANT) [Suspect]
     Active Substance: HYALURONIDASE (HUMAN RECOMBINANT)
     Indication: Rheumatoid arthritis
     Route: 065
  176. PREDNISONE [Suspect]
     Active Substance: PREDNISONE
     Indication: Rheumatoid arthritis
     Route: 065
  177. XELJANZ [Suspect]
     Active Substance: TOFACITINIB CITRATE
     Indication: Rheumatoid arthritis
     Route: 065
  178. XELJANZ [Suspect]
     Active Substance: TOFACITINIB CITRATE
     Route: 065
  179. XELJANZ [Suspect]
     Active Substance: TOFACITINIB CITRATE
     Route: 065
  180. LEFLUNOMIDE [Suspect]
     Active Substance: LEFLUNOMIDE
     Indication: Rheumatoid arthritis
     Route: 065
  181. LEFLUNOMIDE [Suspect]
     Active Substance: LEFLUNOMIDE
     Route: 065
  182. LEFLUNOMIDE [Suspect]
     Active Substance: LEFLUNOMIDE
     Route: 065
  183. RISEDRONATE SODIUM [Suspect]
     Active Substance: RISEDRONATE SODIUM
     Indication: Product used for unknown indication
     Route: 065
  184. MYCOPHENOLATE MOFETIL [Suspect]
     Active Substance: MYCOPHENOLATE MOFETIL
     Indication: Product used for unknown indication
     Route: 065

REACTIONS (20)
  - Liver disorder [Not Recovered/Not Resolved]
  - Lower limb fracture [Not Recovered/Not Resolved]
  - Lung disorder [Not Recovered/Not Resolved]
  - Muscle injury [Not Recovered/Not Resolved]
  - Muscle spasms [Not Recovered/Not Resolved]
  - Musculoskeletal pain [Not Recovered/Not Resolved]
  - Nasopharyngitis [Not Recovered/Not Resolved]
  - Nausea [Not Recovered/Not Resolved]
  - Night sweats [Not Recovered/Not Resolved]
  - Obesity [Not Recovered/Not Resolved]
  - Musculoskeletal stiffness [Not Recovered/Not Resolved]
  - Oedema [Not Recovered/Not Resolved]
  - Oedema peripheral [Not Recovered/Not Resolved]
  - Osteoarthritis [Not Recovered/Not Resolved]
  - Pain [Not Recovered/Not Resolved]
  - Paraesthesia [Not Recovered/Not Resolved]
  - Pemphigus [Not Recovered/Not Resolved]
  - Pericarditis [Not Recovered/Not Resolved]
  - Peripheral swelling [Not Recovered/Not Resolved]
  - Product use in unapproved indication [Not Recovered/Not Resolved]
